FAERS Safety Report 6433091-7 (Version None)
Quarter: 2009Q4

REPORT INFORMATION
  Report Type: 
  Country: None (occurrence: None)
  Receive Date: 20091109
  Receipt Date: 20091028
  Transmission Date: 20100525
  Serious: Yes (Other)
  Sender: FDA-Public Use
  Company Number: US-PFIZER INC-2009291924

PATIENT
  Sex: Male
  Weight: 102.4 kg

DRUGS (3)
  1. GEODON [Suspect]
     Indication: PSYCHOTIC DISORDER
     Dosage: 40 MG, 1X/DAY
     Dates: start: 20090101, end: 20091026
  2. ZITHROMAX [Suspect]
     Indication: INFECTION
     Dosage: 250 MG, 1X/DAY
  3. RISPERIDONE [Suspect]
     Dosage: UNK

REACTIONS (12)
  - COUGH [None]
  - EYE SWELLING [None]
  - LIP SWELLING [None]
  - NASOPHARYNGITIS [None]
  - OEDEMA PERIPHERAL [None]
  - OROPHARYNGEAL PAIN [None]
  - PAIN [None]
  - PARANOIA [None]
  - PSYCHOTIC DISORDER [None]
  - RASH [None]
  - URTICARIA [None]
  - WEIGHT INCREASED [None]
